FAERS Safety Report 8999880 (Version 2)
Quarter: 2013Q1

REPORT INFORMATION
  Report Type: Spontaneous
  Country: TW (occurrence: TW)
  Receive Date: 20130102
  Receipt Date: 20130305
  Transmission Date: 20140127
  Serious: Yes (Hospitalization)
  Sender: FDA-Public Use
  Company Number: TW-ABBOTT-12P-153-1027524-00

PATIENT
  Age: 27 Year
  Sex: Female
  Weight: 72 kg

DRUGS (2)
  1. HUMIRA [Suspect]
     Indication: CROHN^S DISEASE
     Route: 058
     Dates: start: 20120713, end: 20120714
  2. MESALAZINE [Concomitant]
     Indication: CROHN^S DISEASE

REACTIONS (7)
  - Pyrexia [Recovering/Resolving]
  - Urinary tract infection bacterial [Recovering/Resolving]
  - Oropharyngeal pain [Recovering/Resolving]
  - Headache [Recovering/Resolving]
  - Pain [Recovering/Resolving]
  - Device related infection [Recovered/Resolved]
  - Corynebacterium infection [Recovered/Resolved]
